FAERS Safety Report 5848480-9 (Version None)
Quarter: 2008Q3

REPORT INFORMATION
  Report Type: 
  Country: None (occurrence: None)
  Receive Date: 20080814
  Receipt Date: 20080731
  Transmission Date: 20090109
  Serious: Yes (Death, Hospitalization)
  Sender: FDA-Public Use
  Company Number: 02100-JPN-05-0468

PATIENT
  Age: 73 Year
  Sex: Male
  Weight: 58 kg

DRUGS (14)
  1. PLETAL [Suspect]
     Indication: CEREBRAL INFARCTION
     Dosage: 100 MG, BID ORAL
     Route: 048
     Dates: start: 20040901, end: 20071007
  2. TIARYL (TIAPRIDE HYDROCHLORIDE) TABLET [Concomitant]
  3. SERMION (NICERGOLINE) TABLET [Concomitant]
  4. LAC B (LACTOBACILLUS BIFIDUS, LYOPHILIZED) [Concomitant]
  5. CEREKINON (TRIMEBUTINE MALEATE) [Concomitant]
  6. GAISAL (AZULENE SULFONATE SODIUM/L-GLUTAMINE) [Concomitant]
  7. SYMMETREL (AMANTADINE HYDEROCHLORIDE) TABLET [Concomitant]
  8. POLLAKISU (OXYBUTYNIN HYDROCHLORIDE) [Concomitant]
  9. GOSHA-JINKI-GAN (GOSHA-JINKI-GAN) [Concomitant]
  10. OZEX (TOSUFLOXACIN TOSILATE) [Concomitant]
  11. LOXONIN (LOXOPROFEN SODIUM) TABLET [Concomitant]
  12. BFLUID (MIXED AMINO ACID/CARBOHYDRATE ELECTROLYTE/VITAMIN COMBINE) [Concomitant]
  13. LACTATED RINGE (LACTATED RINGER'S SOLUTION) [Concomitant]
  14. ACTIT (MALTOSE, SODIUM ACETATE, POTASSIUM CHLORIDE, POTASSIUM PHOSPHAT [Concomitant]

REACTIONS (18)
  - ABULIA [None]
  - ACTIVITIES OF DAILY LIVING IMPAIRED [None]
  - ANAEMIA [None]
  - ANOREXIA [None]
  - BLOOD GLUCOSE ABNORMAL [None]
  - BONE CANCER METASTATIC [None]
  - DEHYDRATION [None]
  - DISUSE SYNDROME [None]
  - EATING DISORDER [None]
  - GINGIVITIS [None]
  - HYPOPHAGIA [None]
  - HYPOPROTEINAEMIA [None]
  - MALAISE [None]
  - MULTI-ORGAN FAILURE [None]
  - PNEUMONIA [None]
  - PRODUCTIVE COUGH [None]
  - PROSTATE CANCER [None]
  - SWELLING FACE [None]
